FAERS Safety Report 10665568 (Version 1)
Quarter: 2014Q4

REPORT INFORMATION
  Report Type: Spontaneous
  Country: JP (occurrence: JP)
  Receive Date: 20141219
  Receipt Date: 20141219
  Transmission Date: 20150529
  Serious: Yes (Life-Threatening, Hospitalization, Other)
  Sender: FDA-Public Use
  Company Number: JP-ASTRAZENECA-2014SE96987

PATIENT
  Age: 36 Year
  Sex: Female

DRUGS (5)
  1. ANTI-ANXIETY AGENT [Suspect]
     Active Substance: UNSPECIFIED INGREDIENT
     Dates: start: 20141210
  2. NEUROPSYCHIATRIC DRUG [Suspect]
     Active Substance: UNSPECIFIED INGREDIENT
     Dates: start: 20141210
  3. SEROQUEL [Suspect]
     Active Substance: QUETIAPINE FUMARATE
     Indication: SUICIDE ATTEMPT
     Route: 048
     Dates: start: 20141210
  4. HYPNOTIC SEDATIVE DRUG [Suspect]
     Active Substance: UNSPECIFIED INGREDIENT
     Dates: start: 20141210
  5. ANTIDEPRESSANT DRUG [Suspect]
     Active Substance: UNSPECIFIED INGREDIENT
     Dates: start: 20141210

REACTIONS (3)
  - Suicide attempt [Unknown]
  - Intentional overdose [Unknown]
  - Coma [Unknown]

NARRATIVE: CASE EVENT DATE: 20141210
